FAERS Safety Report 9307483 (Version 1)
Quarter: 2013Q2

REPORT INFORMATION
  Report Type: Report from Study
  Country: CA (occurrence: CA)
  Receive Date: 20130524
  Receipt Date: 20130524
  Transmission Date: 20140414
  Serious: Yes (Other)
  Sender: FDA-Public Use
  Company Number: CA-ROCHE-1226051

PATIENT
  Age: 83 Year
  Sex: Male
  Weight: 71.7 kg

DRUGS (11)
  1. RITUXAN [Suspect]
     Indication: PEMPHIGUS
     Dosage: LAST DOSE PRIOR TO THE EVENT: 18/DEC/2012
     Route: 042
     Dates: start: 20101115
  2. PREDNISONE [Concomitant]
  3. FLOMAX [Concomitant]
  4. AZATHIOPRINE [Concomitant]
  5. MORPHINE [Concomitant]
  6. CELEBREX [Concomitant]
  7. METFORMIN [Concomitant]
  8. DIPHENHYDRAMINE HCL [Concomitant]
     Indication: PREMEDICATION
     Route: 048
     Dates: start: 20101115
  9. ACETAMINOPHEN [Concomitant]
     Indication: PREMEDICATION
     Route: 048
     Dates: start: 20101115
  10. PREDNISONE [Concomitant]
     Indication: PREMEDICATION
     Route: 048
     Dates: start: 20101115, end: 20110530
  11. SOLU-CORTEF [Concomitant]
     Indication: PREMEDICATION
     Route: 042
     Dates: start: 20111115

REACTIONS (3)
  - Eye pain [Recovered/Resolved]
  - Ocular pemphigoid [Recovered/Resolved]
  - Ocular pemphigoid [Not Recovered/Not Resolved]
